FAERS Safety Report 14426133 (Version 1)
Quarter: 2018Q1

REPORT INFORMATION
  Report Type: Spontaneous
  Country: FR (occurrence: FR)
  Receive Date: 20180123
  Receipt Date: 20180123
  Transmission Date: 20180509
  Serious: Yes (Hospitalization, Other)
  Sender: FDA-Public Use
  Company Number: FR-PFIZER INC-2018025586

PATIENT
  Age: 44 Year
  Sex: Male

DRUGS (6)
  1. STRESAM [Suspect]
     Active Substance: ETIFOXINE
     Indication: DEPRESSION
  2. ALPRAZOLAM. [Suspect]
     Active Substance: ALPRAZOLAM
     Indication: ANXIETY
     Dosage: 0.5 MG, 1X/DAY AT BEDTIME
     Route: 048
     Dates: start: 20171207
  3. STRESAM [Suspect]
     Active Substance: ETIFOXINE
     Indication: ANXIETY
     Dosage: 1 DF, 3X/DAY
     Route: 048
     Dates: start: 20171207, end: 20171211
  4. ALPRAZOLAM. [Suspect]
     Active Substance: ALPRAZOLAM
     Indication: DEPRESSION
  5. LAROXYL [Suspect]
     Active Substance: AMITRIPTYLINE HYDROCHLORIDE
     Indication: ANXIETY
     Dosage: 3 GTT, 1X/DAY IN THE EVENING
     Route: 048
     Dates: start: 20171207, end: 20171209
  6. LAROXYL [Suspect]
     Active Substance: AMITRIPTYLINE HYDROCHLORIDE
     Indication: DEPRESSION

REACTIONS (3)
  - Urticaria [Recovered/Resolved]
  - Anaphylactic reaction [Recovered/Resolved]
  - Angioedema [Recovered/Resolved]

NARRATIVE: CASE EVENT DATE: 20171209
